FAERS Safety Report 5672001-7 (Version None)
Quarter: 2008Q1

REPORT INFORMATION
  Report Type: 
  Country: None (occurrence: None)
  Receive Date: 20080314
  Receipt Date: 20071120
  Transmission Date: 20080703
  Serious: Yes (Other)
  Sender: FDA-Public Use
  Company Number: 2008EU000349

PATIENT
  Sex: Female

DRUGS (1)
  1. TACROLIMUS [Suspect]
     Dosage: /D

REACTIONS (2)
  - BIOPSY CERVIX ABNORMAL [None]
  - PRECANCEROUS CELLS PRESENT [None]
